FAERS Safety Report 5472864-4 (Version None)
Quarter: 2007Q4

REPORT INFORMATION
  Report Type: 
  Country: None (occurrence: None)
  Receive Date: 20071001
  Receipt Date: 20070927
  Transmission Date: 20080405
  Serious: Yes (Death, Hospitalization)
  Sender: FDA-Public Use
  Company Number: A0684861A

PATIENT
  Age: 43 Year
  Sex: Female
  Weight: 138 kg

DRUGS (2)
  1. SERETIDE [Suspect]
     Indication: ASTHMA
     Route: 055
     Dates: start: 20070826, end: 20070912
  2. AMBROXOL HYDROCHLORIDE [Concomitant]
     Dates: start: 20060901, end: 20070912

REACTIONS (1)
  - INFECTION [None]
